FAERS Safety Report 5138663-8 (Version None)
Quarter: 2006Q4

REPORT INFORMATION
  Report Type: 
  Country: None (occurrence: None)
  Receive Date: 20061030
  Receipt Date: 20060407
  Transmission Date: 20070319
  Serious: Yes (Life-Threatening, Hospitalization)
  Sender: FDA-Public Use
  Company Number: FR-SANOFI-SYNTHELABO-F01200600985

PATIENT
  Sex: Male
  Weight: 63 kg

DRUGS (5)
  1. DURAGESIC-100 [Concomitant]
  2. LEUCOVORIN CALCIUM [Suspect]
     Route: 042
     Dates: start: 20050826, end: 20050827
  3. FLUOROURACIL [Suspect]
     Dosage: 400 MG/M2 BOLUS DAY 1, 600 MG/M2 INFUSION DAYS 1 AND 2
     Route: 042
     Dates: start: 20050826, end: 20050827
  4. OXALIPLATIN [Suspect]
     Indication: OESOPHAGEAL CARCINOMA
     Route: 042
     Dates: start: 20050826, end: 20050826
  5. RADIOTHERAPY [Suspect]
     Indication: OESOPHAGEAL CARCINOMA
     Dosage: TOTAL DOSE OF FRACTION ADMINISTERED BEFORE SAE: 50GY
     Route: 050
     Dates: start: 20050715, end: 20050822

REACTIONS (2)
  - FEBRILE BONE MARROW APLASIA [None]
  - THROMBOCYTOPENIA [None]
